FAERS Safety Report 16835003 (Version 1)
Quarter: 2019Q3

REPORT INFORMATION
  Report Type: Spontaneous
  Country: CH (occurrence: CH)
  Receive Date: 20190920
  Receipt Date: 20190920
  Transmission Date: 20191005
  Serious: Yes (Life-Threatening, Other)
  Sender: FDA-Public Use
  Company Number: CH-PURDUE PHARMA-GBR-2019-0070686

PATIENT
  Age: 6 Week
  Sex: Male
  Weight: 4.8 kg

DRUGS (1)
  1. MORPHINE SULFATE. [Suspect]
     Active Substance: MORPHINE SULFATE
     Indication: PAIN
     Dosage: 5 MG/KG VIA GASTRIC DRAIN TUBE
     Route: 050

REACTIONS (4)
  - Myoclonus [Recovered/Resolved]
  - Product prescribing error [Recovered/Resolved]
  - Opisthotonus [Recovered/Resolved]
  - Overdose [Recovered/Resolved]
